FAERS Safety Report 8896235 (Version 1)
Quarter: 2012Q4

REPORT INFORMATION
  Report Type: Spontaneous
  Country: US (occurrence: None)
  Receive Date: 20121106
  Receipt Date: 20121106
  Transmission Date: 20130627
  Serious: Yes (Other)
  Sender: FDA-Public Use
  Company Number: None

PATIENT
  Age: 68 Year
  Sex: Male

DRUGS (2)
  1. XTANDI [Suspect]
     Indication: PROSTATE CANCER
     Dosage: 160 mg daily po
     Route: 048
     Dates: start: 20120505
  2. XTANDI [Suspect]
     Indication: PROSTATE CANCER
     Dates: start: 20121105

REACTIONS (4)
  - Pain in extremity [None]
  - Arthralgia [None]
  - Pain in extremity [None]
  - Back pain [None]
